FAERS Safety Report 22653954 (Version 2)
Quarter: 2025Q2

REPORT INFORMATION
  Report Type: Report from Study
  Country: US (occurrence: US)
  Receive Date: 20230629
  Receipt Date: 20250610
  Transmission Date: 20250717
  Serious: No
  Sender: SANOFI AVENTIS
  Company Number: US-SA-SAC20230627001065

PATIENT
  Age: 42 Year
  Sex: Female
  Weight: 63.5 kg

DRUGS (7)
  1. DUPILUMAB [Suspect]
     Active Substance: DUPILUMAB
     Indication: Dermatitis atopic
     Dosage: 300 MG, QOW
     Route: 058
  2. TRETINOIN [Concomitant]
     Active Substance: TRETINOIN
  3. CLOBETASOL [Concomitant]
     Active Substance: CLOBETASOL
  4. SEA MOSS [Concomitant]
  5. TYLENOL [Concomitant]
     Active Substance: ACETAMINOPHEN
  6. TRIAMCINOLONE [Concomitant]
     Active Substance: TRIAMCINOLONE
  7. SHILAJIT [Concomitant]
     Active Substance: FULVIC ACID

REACTIONS (2)
  - Pruritus [Unknown]
  - Product dose omission issue [Unknown]
